FAERS Safety Report 6498857-6 (Version None)
Quarter: 2009Q4

REPORT INFORMATION
  Report Type: 
  Country: None (occurrence: None)
  Receive Date: 20091215
  Receipt Date: 20091214
  Transmission Date: 20100525
  Serious: Yes (Death)
  Sender: FDA-Public Use
  Company Number: US-JNJFOC-20090801381

PATIENT
  Age: 18 Month
  Sex: Male
  Weight: 8.2 kg

DRUGS (5)
  1. TYLENOL (CAPLET) [Suspect]
     Route: 048
  2. TYLENOL (CAPLET) [Suspect]
     Indication: EAR INFECTION
     Dosage: 160 MG/5 ML, Q4H, 4 DAYS
     Route: 048
  3. RANITIDINE [Concomitant]
     Route: 065
  4. CISAPRIDE [Concomitant]
     Route: 065
  5. AMOXICILLIN [Concomitant]
     Dosage: 2 DAYS PTA,SWITCHED TO CEFPROZIL 1 DAY PTA
     Route: 065

REACTIONS (8)
  - CEREBRAL ISCHAEMIA [None]
  - COAGULOPATHY [None]
  - DEATH [None]
  - HEPATIC NECROSIS [None]
  - RENAL FAILURE [None]
  - RESPIRATORY DISORDER [None]
  - SEPSIS [None]
  - SHOCK [None]
